FAERS Safety Report 11118820 (Version 1)
Quarter: 2015Q2

REPORT INFORMATION
  Report Type: Spontaneous
  Country: US (occurrence: US)
  Receive Date: 20150518
  Receipt Date: 20150518
  Transmission Date: 20150821
  Serious: Yes (Other)
  Sender: FDA-Public Use
  Company Number: US-ASTELLAS-2015US016222

PATIENT
  Sex: Male

DRUGS (1)
  1. XTANDI [Suspect]
     Active Substance: ENZALUTAMIDE
     Indication: PROSTATE CANCER
     Route: 048

REACTIONS (8)
  - Arthropathy [Unknown]
  - Hypertension [Unknown]
  - Phlebitis superficial [Unknown]
  - Feeling hot [Unknown]
  - Lymphoedema [Unknown]
  - Peripheral swelling [Not Recovered/Not Resolved]
  - Tenderness [Unknown]
  - Erythema [Unknown]

NARRATIVE: CASE EVENT DATE: 2014
